FAERS Safety Report 17518964 (Version 1)
Quarter: 2020Q1

REPORT INFORMATION
  Report Type: Spontaneous
  Country: US (occurrence: US)
  Receive Date: 20200228
  Receipt Date: 20200228
  Transmission Date: 20200409
  Serious: No
  Sender: FDA-Public Use
  Company Number: None

PATIENT
  Age: 64 Year
  Sex: Female

DRUGS (1)
  1. GENTAMICIN SULFATE 40MG/ML FRESENIUS KABI USA [Suspect]
     Active Substance: GENTAMICIN SULFATE
     Indication: ENDOCARDITIS
     Dosage: ?          OTHER FREQUENCY:Q24HR;?
     Route: 042
     Dates: start: 20200212

REACTIONS (1)
  - Blood creatine increased [None]

NARRATIVE: CASE EVENT DATE: 20200219
